FAERS Safety Report 8200785-2 (Version None)
Quarter: 2012Q1

REPORT INFORMATION
  Report Type: 
  Country: None (occurrence: None)
  Receive Date: 20120312
  Receipt Date: 20120301
  Transmission Date: 20120608
  Serious: Yes (Other)
  Sender: FDA-Public Use
  Company Number: US-SANOFI-AVENTIS-2012SA014362

PATIENT

DRUGS (4)
  1. ELOXATIN [Suspect]
     Route: 041
  2. ELOXATIN [Suspect]
     Route: 041
  3. ELOXATIN [Suspect]
     Route: 041
  4. ELOXATIN [Suspect]
     Route: 041

REACTIONS (1)
  - UNRESPONSIVE TO STIMULI [None]
